FAERS Safety Report 16021682 (Version 1)
Quarter: 2019Q1

REPORT INFORMATION
  Report Type: Spontaneous
  Country: US (occurrence: US)
  Receive Date: 20190301
  Receipt Date: 20190301
  Transmission Date: 20190418
  Serious: No
  Sender: FDA-Public Use
  Company Number: None

PATIENT
  Age: 83 Year
  Sex: Male
  Weight: 125.6 kg

DRUGS (2)
  1. IMBRUVICA [Suspect]
     Active Substance: IBRUTINIB
  2. IMBRUVICA [Concomitant]
     Active Substance: IBRUTINIB

REACTIONS (2)
  - Product label confusion [None]
  - Incorrect dose administered [None]
